FAERS Safety Report 5323417-X (Version None)
Quarter: 2007Q2

REPORT INFORMATION
  Report Type: 
  Country: None (occurrence: None)
  Receive Date: 20070514
  Receipt Date: 20070503
  Transmission Date: 20071010
  Serious: Yes (Disabling)
  Sender: FDA-Public Use
  Company Number: PHBS2007NL07029

PATIENT
  Age: 71 Year
  Sex: Female
  Weight: 75 kg

DRUGS (4)
  1. RIVASTIGMINE [Suspect]
     Indication: DEMENTIA ALZHEIMER'S TYPE
     Dosage: TWICE DAILY
     Dates: start: 20070103
  2. REMINYL [Suspect]
     Dosage: 8 MG, QD
     Dates: start: 20070105, end: 20070223
  3. ACETYLSALICYLIC ACID SRT [Concomitant]
     Indication: PAIN
     Dosage: 80 MG, QD
     Dates: start: 20051001
  4. IRON SUPPLEMENTS [Concomitant]
     Dosage: 1DF PER TIME

REACTIONS (7)
  - ABNORMAL BEHAVIOUR [None]
  - ACCIDENTAL EXPOSURE [None]
  - BALANCE DISORDER [None]
  - GAIT DISTURBANCE [None]
  - MENIERE'S DISEASE [None]
  - OVERDOSE [None]
  - VERTIGO [None]
